FAERS Safety Report 21577776 (Version 3)
Quarter: 2022Q4

REPORT INFORMATION
  Report Type: Spontaneous
  Country: US (occurrence: US)
  Receive Date: 20221110
  Receipt Date: 20221214
  Transmission Date: 20230113
  Serious: No
  Sender: FDA-Public Use
  Company Number: US-PFIZER INC-202201272484

PATIENT
  Age: 10 Year
  Sex: Female
  Weight: 29.57 kg

DRUGS (4)
  1. GENOTROPIN [Suspect]
     Active Substance: SOMATROPIN
     Indication: Growth accelerated
     Dosage: 1.6MG BY INJECTION MONDAY-SATURDAY
  2. ADDERALL [Concomitant]
     Active Substance: AMPHETAMINE ASPARTATE\AMPHETAMINE SULFATE\DEXTROAMPHETAMINE SACCHARATE\DEXTROAMPHETAMINE SULFATE
     Indication: Attention deficit hyperactivity disorder
     Dosage: TAKES AN XR DOSE OF 25MG EVERY MORNING, AND TAKES AN IMMEDIATE RELEASE DOSE OF 5MG IN THE AFTERNOON
  3. GUANFACINE [Concomitant]
     Active Substance: GUANFACINE
     Indication: Sleep disorder
     Dosage: 3 MG, DAILY [3MG EVERY NIGHT]
  4. MELATONIN [Concomitant]
     Active Substance: MELATONIN
     Indication: Sleep disorder
     Dosage: 5 MG, DAILY (5MG AT BEDTIME)

REACTIONS (4)
  - Device breakage [Unknown]
  - Device material issue [Unknown]
  - Drug dose omission by device [Not Recovered/Not Resolved]
  - Expired device used [Unknown]

NARRATIVE: CASE EVENT DATE: 20221029
